FAERS Safety Report 5205923-1 (Version None)
Quarter: 2006Q4

REPORT INFORMATION
  Report Type: 
  Country: None (occurrence: None)
  Receive Date: 20061026
  Receipt Date: 20060731
  Transmission Date: 20070319
  Serious: No
  Sender: FDA-Public Use
  Company Number: 2006093798

PATIENT
  Sex: Male
  Weight: 86.1834 kg

DRUGS (6)
  1. LYRICA [Suspect]
     Indication: NEUROPATHY
     Dosage: 150 MG (75 MG, 2 IN 1 D), UNKNOWN
     Dates: start: 20060601
  2. ARTHROTEC [Concomitant]
  3. TAMSULOSIN HCL [Concomitant]
  4. AVODART [Concomitant]
  5. PREVACID [Concomitant]
  6. DULCOLAX [Concomitant]

REACTIONS (2)
  - DIZZINESS [None]
  - HYPERSOMNIA [None]
